FAERS Safety Report 5170136-9 (Version None)
Quarter: 2006Q4

REPORT INFORMATION
  Report Type: 
  Country: None (occurrence: None)
  Receive Date: 20061201
  Receipt Date: 20061117
  Transmission Date: 20070319
  Serious: Yes (Other)
  Sender: FDA-Public Use
  Company Number: 2006SP006875

PATIENT
  Age: 53 Year
  Sex: Female

DRUGS (3)
  1. PEG-INTRON [Suspect]
     Indication: HEPATITIS C
     Dosage: 150 MCG;QW;SC
     Route: 058
     Dates: start: 20061006
  2. REBETOL [Suspect]
     Indication: HEPATITIS C
     Dosage: 1400 MG;QD;PO
     Route: 048
     Dates: start: 20061006
  3. PHENERGAN [Concomitant]

REACTIONS (8)
  - ALOPECIA [None]
  - ANGER [None]
  - DEHYDRATION [None]
  - DEPRESSION [None]
  - FOOD POISONING [None]
  - INFLUENZA LIKE ILLNESS [None]
  - INJECTION SITE INDURATION [None]
  - THINKING ABNORMAL [None]
